FAERS Safety Report 21130665 (Version 1)
Quarter: 2022Q3

REPORT INFORMATION
  Report Type: Spontaneous
  Country: US (occurrence: US)
  Receive Date: 20220726
  Receipt Date: 20220726
  Transmission Date: 20221026
  Serious: Yes (Other)
  Sender: FDA-Public Use
  Company Number: US-SA-SAC20220721001394

PATIENT
  Age: 66 Year
  Sex: Female

DRUGS (2)
  1. ZANTAC [Suspect]
     Active Substance: RANITIDINE HYDROCHLORIDE
     Indication: Dyspepsia
     Dosage: 25 MG, QD
     Route: 065
     Dates: start: 200906
  2. ZANTAC [Suspect]
     Active Substance: RANITIDINE HYDROCHLORIDE
     Dosage: 40 MG, QD
     Route: 065
     Dates: end: 201312

REACTIONS (1)
  - Renal cancer stage III [Unknown]

NARRATIVE: CASE EVENT DATE: 20141015
